FAERS Safety Report 24088544 (Version 2)
Quarter: 2024Q3

REPORT INFORMATION
  Report Type: Report from Study
  Country: CO (occurrence: CO)
  Receive Date: 20240715
  Receipt Date: 20240822
  Transmission Date: 20241017
  Serious: Yes (Death, Hospitalization, Other)
  Sender: ABBVIE
  Company Number: CO-ABBVIE-5838896

PATIENT
  Age: 65 Year
  Sex: Male
  Weight: 43 kg

DRUGS (4)
  1. SKYRIZI [Suspect]
     Active Substance: RISANKIZUMAB-RZAA
     Indication: Psoriasis
     Dosage: FORM STRENGTH: 150 MILLIGRAM
     Route: 058
     Dates: start: 20230915, end: 20240508
  2. MYLANTA [Concomitant]
     Active Substance: ALUMINUM HYDROXIDE\DIMETHICONE\MAGNESIUM HYDROXIDE
     Indication: Abdominal pain upper
     Dosage: SINGLE DOSE
     Route: 048
     Dates: start: 20240704, end: 20240704
  3. ESOMEPRAZOLE [Concomitant]
     Active Substance: ESOMEPRAZOLE
     Indication: Abdominal pain upper
     Dosage: SINGLE DOSE
     Route: 048
     Dates: start: 20240704, end: 20240704
  4. BUSCAPINA [Concomitant]
     Indication: Abdominal pain upper
     Dosage: UNKNOW
     Route: 042
     Dates: start: 20240704, end: 20240704

REACTIONS (4)
  - Respiratory arrest [Fatal]
  - Abdominal pain upper [Recovering/Resolving]
  - Mycobacterium tuberculosis complex test positive [Recovered/Resolved]
  - Cholelithiasis [Unknown]

NARRATIVE: CASE EVENT DATE: 20231201
